FAERS Safety Report 24128004 (Version 1)
Quarter: 2024Q3

REPORT INFORMATION
  Report Type: Report from Study
  Country: US (occurrence: US)
  Receive Date: 20240723
  Receipt Date: 20240723
  Transmission Date: 20241016
  Serious: No
  Sender: VANDA PHARMACEUTICALS
  Company Number: US-VANDA PHARMACEUTICALS, INC-2023TASUS007015

PATIENT
  Age: 10 Year
  Sex: Female
  Weight: 18.594 kg

DRUGS (4)
  1. HETLIOZ LQ [Suspect]
     Active Substance: TASIMELTEON
     Indication: Smith-Magenis syndrome
     Dosage: 3.5 MILLIGRAM, QHS, BY MOUTH EVERY NIGHT
     Route: 048
     Dates: start: 202310
  2. FOCALIN [Suspect]
     Active Substance: DEXMETHYLPHENIDATE HYDROCHLORIDE
     Indication: Attention deficit hyperactivity disorder
     Dosage: 5 MILLIGRAM, QD, BY MOUTH DAILY
     Route: 048
  3. FOCALIN [Suspect]
     Active Substance: DEXMETHYLPHENIDATE HYDROCHLORIDE
     Dosage: 10 MILLIGRAM, QD,  BY MOUTH DAILY
     Route: 048
  4. FOCALIN [Suspect]
     Active Substance: DEXMETHYLPHENIDATE HYDROCHLORIDE
     Dosage: 5 MILLIGRAM, QD, BY MOUTH DAILY
     Route: 048
     Dates: start: 202310

REACTIONS (3)
  - Behaviour disorder [Unknown]
  - Depressed mood [Unknown]
  - Ear infection [Unknown]

NARRATIVE: CASE EVENT DATE: 20231001
